FAERS Safety Report 23527774 (Version 1)
Quarter: 2024Q1

REPORT INFORMATION
  Report Type: Spontaneous
  Country: TR (occurrence: TR)
  Receive Date: 20240215
  Receipt Date: 20240215
  Transmission Date: 20240410
  Serious: Yes (Other)
  Sender: FDA-Public Use
  Company Number: TR-TAKEDA-2024TUS012329

PATIENT
  Weight: 2.51 kg

DRUGS (1)
  1. HUMAN IMMUNOGLOBULIN G [Suspect]
     Active Substance: HUMAN IMMUNOGLOBULIN G
     Indication: Thrombocytopenia neonatal
     Dosage: UNK
     Route: 042

REACTIONS (2)
  - Intracranial haemorrhage neonatal [Unknown]
  - Foetal exposure during pregnancy [Unknown]
